FAERS Safety Report 7557431-0 (Version None)
Quarter: 2011Q2

REPORT INFORMATION
  Report Type: 
  Country: None (occurrence: None)
  Receive Date: 20110616
  Receipt Date: 20110616
  Transmission Date: 20111010
  Serious: Yes (Life-Threatening, Hospitalization, Other)
  Sender: FDA-Public Use
  Company Number: None

PATIENT
  Sex: Female
  Weight: 90.7194 kg

DRUGS (1)
  1. CYMBALTA [Suspect]
     Indication: FIBROMYALGIA
     Dosage: 120 MGS 1 QD BUCCAL
     Route: 002
     Dates: start: 20080501, end: 20091115

REACTIONS (8)
  - BRUXISM [None]
  - DRUG WITHDRAWAL SYNDROME [None]
  - PULMONARY HYPERTENSION [None]
  - ATRIAL FIBRILLATION [None]
  - WALKING AID USER [None]
  - PAIN IN EXTREMITY [None]
  - MUSCULOSKELETAL STIFFNESS [None]
  - TOOTH FRACTURE [None]
